FAERS Safety Report 15410126 (Version 4)
Quarter: 2022Q4

REPORT INFORMATION
  Report Type: Spontaneous
  Country: CZ (occurrence: CZ)
  Receive Date: 20180921
  Receipt Date: 20221125
  Transmission Date: 20230112
  Serious: Yes (Other)
  Sender: FDA-Public Use
  Company Number: CZ-009507513-1804CZE002856

PATIENT
  Age: 58 Year
  Sex: Female

DRUGS (15)
  1. ARIPIPRAZOLE [Suspect]
     Active Substance: ARIPIPRAZOLE
     Indication: Major depression
     Dosage: UNK
     Route: 065
  2. CITALOPRAM [Suspect]
     Active Substance: CITALOPRAM HYDROBROMIDE
     Indication: Major depression
     Dosage: SERIES OF CITALOPRAM INFUSIONS
     Route: 065
  3. OLANZAPINE [Suspect]
     Active Substance: OLANZAPINE
     Indication: Major depression
     Dosage: UNK
     Route: 065
  4. ZIPRASIDONE [Suspect]
     Active Substance: ZIPRASIDONE
     Indication: Major depression
     Dosage: UNK
     Route: 065
  5. CLOMIPRAMINE [Suspect]
     Active Substance: CLOMIPRAMINE
     Indication: Major depression
     Dosage: UNK
     Route: 065
  6. ESCITALOPRAM [Suspect]
     Active Substance: ESCITALOPRAM OXALATE
     Indication: Major depression
     Dosage: UNK
     Route: 065
  7. MIRTAZAPINE [Suspect]
     Active Substance: MIRTAZAPINE
     Indication: Major depression
     Dosage: UNK
     Route: 048
  8. RISPERIDONE [Suspect]
     Active Substance: RISPERIDONE
     Indication: Major depression
     Dosage: UNK
     Route: 065
  9. VENLAFAXINE HYDROCHLORIDE [Suspect]
     Active Substance: VENLAFAXINE HYDROCHLORIDE
     Indication: Major depression
     Dosage: UNK
     Route: 065
  10. CLONAZEPAM [Concomitant]
     Active Substance: CLONAZEPAM
     Indication: Delirium
     Dosage: UNK
     Route: 065
  11. HALOPERIDOL [Concomitant]
     Active Substance: HALOPERIDOL
     Indication: Delirium
     Dosage: UNK
     Route: 065
  12. MELPERONE [Concomitant]
     Active Substance: MELPERONE
     Indication: Delirium
     Dosage: UNK
     Route: 065
  13. MEMANTINE [Concomitant]
     Active Substance: MEMANTINE
     Indication: Major depression
     Dosage: UNK
     Route: 065
  14. TIAPRIDE [Concomitant]
     Active Substance: TIAPRIDE
     Indication: Delirium
     Dosage: UNK
     Route: 065
  15. PROPOFOL [Concomitant]
     Active Substance: PROPOFOL
     Indication: Delirium
     Dosage: UNK
     Route: 065

REACTIONS (4)
  - Suicide attempt [Recovered/Resolved]
  - Mental disorder [Not Recovered/Not Resolved]
  - Depression [Not Recovered/Not Resolved]
  - Drug ineffective [Unknown]
